FAERS Safety Report 7488876-5 (Version None)
Quarter: 2011Q2

REPORT INFORMATION
  Report Type: 
  Country: None (occurrence: None)
  Receive Date: 20110518
  Receipt Date: 20110510
  Transmission Date: 20111010
  Serious: Yes (Hospitalization)
  Sender: FDA-Public Use
  Company Number: PHHY2011GB38880

PATIENT
  Age: 5 Year
  Sex: Male

DRUGS (12)
  1. GENTAMICIN [Suspect]
     Dosage: UNK UKN, UNK
  2. CLONAZEPAM [Concomitant]
     Dosage: UNK UKN, UNK
  3. CEFOTAXIME [Suspect]
     Dosage: UNK UKN, UNK
  4. PIPERACILLIN [Suspect]
     Dosage: UNK UKN, UNK
  5. PARALDEHYDE [Concomitant]
     Dosage: UNK UKN, UNK
  6. ERYTHROMYCIN [Suspect]
     Dosage: UNK UKN, UNK
  7. PHENYTOIN [Suspect]
     Dosage: UNK UKN, UNK
  8. VALPROATE BISMUTH [Concomitant]
     Dosage: UNK UG/ML, UNK
  9. CLOBAZAM [Concomitant]
     Dosage: UNK UKN, UNK
  10. LAMOTRIGINE [Suspect]
     Dosage: UNK UKN, UNK
  11. THIOPENTAL SODIUM [Concomitant]
     Dosage: UNK UKN, UNK
  12. DIAZEPAM [Concomitant]
     Dosage: UNK UKN, UNK

REACTIONS (13)
  - BRAIN OEDEMA [None]
  - ISCHAEMIA [None]
  - LEARNING DISORDER [None]
  - APHASIA [None]
  - HYPOXIA [None]
  - FEBRILE CONVULSION [None]
  - DYSTONIA [None]
  - AKINESIA [None]
  - MUSCLE SPASMS [None]
  - ATROPHY [None]
  - PNEUMONIA MYCOPLASMAL [None]
  - ENCEPHALOPATHY [None]
  - MOTOR DYSFUNCTION [None]
